FAERS Safety Report 16338498 (Version 3)
Quarter: 2025Q3

REPORT INFORMATION
  Report Type: Spontaneous
  Country: EU (occurrence: EU)
  Receive Date: 20190521
  Receipt Date: 20250805
  Transmission Date: 20251021
  Serious: Yes (Other)
  Sender: BRISTOL-MYERS SQUIBB COMPANY
  Company Number: EU-BRISTOL-MYERS SQUIBB COMPANY-BMS-2019-045987

PATIENT
  Age: 43 Year
  Sex: Female

DRUGS (6)
  1. ATAZANAVIR SULFATE [Interacting]
     Active Substance: ATAZANAVIR SULFATE
     Indication: HIV infection
  2. EMTRICITABINE [Interacting]
     Active Substance: EMTRICITABINE
     Indication: HIV infection
  3. RITONAVIR [Interacting]
     Active Substance: RITONAVIR
     Indication: HIV infection
  4. ORLISTAT [Interacting]
     Active Substance: ORLISTAT
     Indication: HIV infection
     Dosage: 60 MILLIGRAM, TID
  5. ORLISTAT [Interacting]
     Active Substance: ORLISTAT
     Indication: Weight decreased
  6. TENOFOVIR [Interacting]
     Active Substance: TENOFOVIR
     Indication: HIV infection

REACTIONS (2)
  - Virologic failure [Recovered/Resolved]
  - Drug interaction [Unknown]
